FAERS Safety Report 14435176 (Version 1)
Quarter: 2018Q1

REPORT INFORMATION
  Report Type: Spontaneous
  Country: US (occurrence: US)
  Receive Date: 20180124
  Receipt Date: 20180124
  Transmission Date: 20180509
  Serious: Yes (Hospitalization)
  Sender: FDA-Public Use
  Company Number: None

PATIENT
  Age: 18 Year
  Sex: Female
  Weight: 77 kg

DRUGS (12)
  1. MEROPENUM [Concomitant]
     Active Substance: MEROPENEM
  2. VANCOMYCIN [Concomitant]
     Active Substance: VANCOMYCIN
  3. ONCASPAR [Suspect]
     Active Substance: PEGASPARGASE
     Dates: end: 20180110
  4. VINCRISTINE SULFATE. [Suspect]
     Active Substance: VINCRISTINE SULFATE
     Dates: end: 20180114
  5. CYTARABINE. [Suspect]
     Active Substance: CYTARABINE
     Dates: end: 20180107
  6. PREDNISONE. [Suspect]
     Active Substance: PREDNISONE
     Dates: end: 20180118
  7. MICAFUNGIN [Concomitant]
     Active Substance: MICAFUNGIN
  8. DAUNORUBICIN [Suspect]
     Active Substance: DAUNORUBICIN
     Dates: end: 20180114
  9. METHOTREXATE. [Suspect]
     Active Substance: METHOTREXATE
     Dates: end: 20180114
  10. LINEZOLID. [Concomitant]
     Active Substance: LINEZOLID
  11. POSACONAZOLE [Concomitant]
     Active Substance: POSACONAZOLE
  12. TOTAL PARENTERAL NUTRITION (TPN) [Concomitant]

REACTIONS (1)
  - Blood bilirubin increased [None]

NARRATIVE: CASE EVENT DATE: 20180117
